FAERS Safety Report 19313116 (Version 1)
Quarter: 2021Q2

REPORT INFORMATION
  Report Type: Report from Study
  Country: EG (occurrence: EG)
  Receive Date: 20210527
  Receipt Date: 20210527
  Transmission Date: 20210717
  Serious: Yes (Other)
  Sender: FDA-Public Use
  Company Number: NVSC2021EG118196

PATIENT
  Sex: Male
  Weight: 12.5 kg

DRUGS (2)
  1. OMNITROPE [Suspect]
     Active Substance: SOMATROPIN
     Indication: GROWTH HORMONE DEFICIENCY
     Dosage: 0.5 MG, QD (STARTED A YEAR AGO AND STOPPED A MONTHS AGO
     Route: 058
  2. ENRICH [Concomitant]
     Indication: PRODUCT USED FOR UNKNOWN INDICATION
     Dosage: UNK (5 CM PER DAY)
     Route: 065

REACTIONS (1)
  - Drug resistance [Recovered/Resolved]
